FAERS Safety Report 10497759 (Version 1)
Quarter: 2014Q4

REPORT INFORMATION
  Report Type: Spontaneous
  Country: JP (occurrence: None)
  Receive Date: 20141002
  Receipt Date: 20141002
  Transmission Date: 20150528
  Serious: Yes (Hospitalization)
  Sender: FDA-Public Use
  Company Number: AXC-2014-000573

PATIENT
  Age: 65 Year
  Sex: Male

DRUGS (7)
  1. PEGINTERFERON ALFA-2B (PEGINTERFERON ALFA-2B) INJECTION [Suspect]
     Active Substance: PEGINTERFERON ALFA-2B
     Indication: HEPATITIS C
     Route: 058
  2. URSODEOXYCHOLIC ACID (URSODEOXYCHOLIC ACID) UNKNOWN) [Suspect]
     Active Substance: URSODIOL
     Indication: CHRONIC HEPATITIS C
  3. VOGLIBOSE (VOGLIBOSE) UNKNOWN [Suspect]
     Active Substance: VOGLIBOSE
     Indication: TYPE 2 DIABETES MELLITUS
  4. SIMEPREVIR (SIMEPREVIR) UNKNOWN [Suspect]
     Active Substance: SIMEPREVIR
     Indication: HEPATITIS C
     Route: 048
  5. RIBAVIRIN (RIBAVIRIN) UNKNOWN, UNKNOWN [Suspect]
     Active Substance: RIBAVIRIN
     Indication: HEPATITIS C
     Route: 048
  6. GLIMEPIRIDE (GLIMEPIRIDE) UNKNOWN [Suspect]
     Active Substance: GLIMEPIRIDE
     Indication: TYPE 2 DIABETES MELLITUS
  7. ALLOPURINOL (ALLOPURINOL) UNKNOWN [Suspect]
     Active Substance: ALLOPURINOL
     Indication: HYPERURICAEMIA

REACTIONS (6)
  - Fatigue [None]
  - Drug-induced liver injury [None]
  - Headache [None]
  - Malaise [None]
  - Hepatitis chronic active [None]
  - Abdominal distension [None]
